FAERS Safety Report 22142642 (Version 12)
Quarter: 2024Q1

REPORT INFORMATION
  Report Type: Spontaneous
  Country: US (occurrence: US)
  Receive Date: 20230327
  Receipt Date: 20240229
  Transmission Date: 20240410
  Serious: Yes (Hospitalization, Other)
  Sender: FDA-Public Use
  Company Number: US-PFIZER INC-2021355442

PATIENT
  Age: 74 Year
  Sex: Female
  Weight: 48.08 kg

DRUGS (15)
  1. IBRANCE [Suspect]
     Active Substance: PALBOCICLIB
     Indication: Ovarian cancer
     Dosage: 125 MG, CYCLIC(125MG ONCE A DAY FOR 3 WEEKS AND THEN IS OFF 1 WEEK)
     Route: 048
  2. IBRANCE [Suspect]
     Active Substance: PALBOCICLIB
     Dosage: 125 MG, CYCLIC (ONCE A DAY THREE WEEKS AND OFF A WEEK)
     Route: 048
     Dates: start: 20230421
  3. LEVOTHYROXINE [Concomitant]
     Active Substance: LEVOTHYROXINE\LEVOTHYROXINE SODIUM
     Indication: Thyroid disorder
     Dosage: 25 UG, DAILY
     Dates: start: 2018
  4. ANORO ELLIPTA [Concomitant]
     Active Substance: UMECLIDINIUM BROMIDE\VILANTEROL TRIFENATATE
     Indication: Dyspnoea
     Dosage: UNK, DAILY(62.5MCG/25MCG EVERY MORNING AT 6AM)
  5. LEVALBUTEROL [Concomitant]
     Active Substance: LEVALBUTEROL
     Indication: Dyspnoea
     Dosage: UNK, 1X/DAY(NEBULIZER ONCE A DAY)
  6. IPRATROPIUM [Concomitant]
     Active Substance: IPRATROPIUM
     Indication: Dyspnoea
     Dosage: UNK
  7. PREDNISONE [Concomitant]
     Active Substance: PREDNISONE
     Indication: Dyspnoea
     Dosage: 40 MG
     Dates: start: 2017
  8. PREDNISONE [Concomitant]
     Active Substance: PREDNISONE
     Dosage: 5 MG, 1X/DAY
  9. LOSARTAN [Concomitant]
     Active Substance: LOSARTAN
     Indication: Hypertension
     Dosage: UNK
  10. PEPCID [Concomitant]
     Active Substance: FAMOTIDINE
     Indication: Gastric neoplasm
     Dosage: UNK, DAILY
     Dates: start: 202210
  11. OMEPRAZOLE [Concomitant]
     Active Substance: OMEPRAZOLE
     Indication: Gastric neoplasm
     Dosage: UNK, DAILY
     Dates: start: 202210
  12. AZITHROMYCIN [Concomitant]
     Active Substance: AZITHROMYCIN
     Dosage: 250 MG (THREE TIMES A WEEK BY MOUTH, MONDAY,WEDNESDAY, AND FRIDAY)
  13. AMOXICILLIN\CLAVULANIC ACID [Concomitant]
     Active Substance: AMOXICILLIN\CLAVULANIC ACID
     Dosage: UNK (875MG-125MG TABLET TWICE A DAY FOR TEN DAYS BY MOUTH)
     Route: 048
  14. AUGMENTIN [Concomitant]
     Active Substance: AMOXICILLIN\CLAVULANATE POTASSIUM
     Dosage: UNK (875MG-125MG TABLET TWICE A DAY FOR TEN DAYS BY MOUTH)
     Route: 048
  15. VORICONAZOLE [Concomitant]
     Active Substance: VORICONAZOLE
     Dosage: 200 MG, 2X/DAY
     Route: 048

REACTIONS (20)
  - Pneumonia bacterial [Unknown]
  - Obstruction gastric [Unknown]
  - Dyspnoea [Unknown]
  - Skin discolouration [Unknown]
  - Central venous catheterisation [Unknown]
  - Haemorrhage [Unknown]
  - Parenteral nutrition [Unknown]
  - Neoplasm progression [Unknown]
  - Dyspnoea [Unknown]
  - Vomiting [Unknown]
  - Weight decreased [Recovering/Resolving]
  - Abdominal discomfort [Unknown]
  - Illness [Unknown]
  - Cough [Unknown]
  - Platelet count decreased [Unknown]
  - Memory impairment [Unknown]
  - Lung disorder [Recovering/Resolving]
  - Diarrhoea [Not Recovered/Not Resolved]
  - Pain [Unknown]
  - Off label use [Unknown]

NARRATIVE: CASE EVENT DATE: 20221001
